FAERS Safety Report 15979979 (Version 1)
Quarter: 2019Q1

REPORT INFORMATION
  Report Type: Spontaneous
  Country: GB (occurrence: GB)
  Receive Date: 20190219
  Receipt Date: 20190219
  Transmission Date: 20190418
  Serious: Yes (Hospitalization, Other)
  Sender: FDA-Public Use
  Company Number: GB-ACCORD-107691

PATIENT
  Age: 74 Year
  Sex: Male
  Weight: 72 kg

DRUGS (4)
  1. FUROSEMIDE. [Suspect]
     Active Substance: FUROSEMIDE
     Indication: CARDIAC DISORDER
  2. CANDESARTAN. [Interacting]
     Active Substance: CANDESARTAN
     Indication: CARDIAC DISORDER
  3. CARVEDILOL/CARVEDILOL HYDROCHLODRIDE [Interacting]
     Active Substance: CARVEDILOL HYDROCHLORIDE
     Indication: CARDIAC DISORDER
  4. DENOSUMAB [Interacting]
     Active Substance: DENOSUMAB
     Indication: OSTEOPOROSIS
     Dates: start: 20170828

REACTIONS (4)
  - Arthralgia [Not Recovered/Not Resolved]
  - Burning sensation [Not Recovered/Not Resolved]
  - Drug interaction [Unknown]
  - Pain in extremity [Not Recovered/Not Resolved]

NARRATIVE: CASE EVENT DATE: 20171010
